FAERS Safety Report 9799472 (Version 1)
Quarter: 2014Q1

REPORT INFORMATION
  Report Type: Spontaneous
  Country: US (occurrence: None)
  Receive Date: 20140103
  Receipt Date: 20140103
  Transmission Date: 20141002
  Serious: Yes (Other)
  Sender: FDA-Public Use
  Company Number: None

PATIENT
  Age: 54 Year
  Sex: Male
  Weight: 86.64 kg

DRUGS (7)
  1. STRIBILD [Suspect]
     Indication: HIV INFECTION
     Dosage: 1  QD  ORAL
     Route: 048
     Dates: start: 20131101, end: 20131220
  2. ATRIPLA [Concomitant]
  3. INDOCIN [Concomitant]
  4. NEURONTIN [Concomitant]
  5. TRAMADOL [Concomitant]
  6. ASA [Concomitant]
  7. NORCO 10 [Concomitant]

REACTIONS (2)
  - Muscular weakness [None]
  - Muscular weakness [None]
